FAERS Safety Report 25624446 (Version 1)
Quarter: 2025Q3

REPORT INFORMATION
  Report Type: Spontaneous
  Country: US (occurrence: US)
  Receive Date: 20250730
  Receipt Date: 20250730
  Transmission Date: 20251021
  Serious: Yes (Hospitalization, Other)
  Sender: AMGEN
  Company Number: US-AMGEN-USASP2025145781

PATIENT
  Age: 67 Year
  Sex: Female

DRUGS (1)
  1. CINACALCET HYDROCHLORIDE [Suspect]
     Active Substance: CINACALCET HYDROCHLORIDE
     Indication: Papillary thyroid cancer
     Route: 065

REACTIONS (3)
  - Hungry bone syndrome [Unknown]
  - Papillary thyroid cancer [Unknown]
  - Hypercalcaemia [Unknown]
